FAERS Safety Report 21247981 (Version 1)
Quarter: 2022Q3

REPORT INFORMATION
  Report Type: Report from Study
  Country: US (occurrence: US)
  Receive Date: 20220824
  Receipt Date: 20220824
  Transmission Date: 20221027
  Serious: No
  Sender: FDA-Public Use
  Company Number: US-NOVARTISTESTPH-NVSC2022US186974

PATIENT
  Sex: Female

DRUGS (1)
  1. ZORTRESS [Suspect]
     Active Substance: EVEROLIMUS
     Indication: Product used for unknown indication
     Dosage: 0.5 MG, OTHER
     Route: 048
     Dates: start: 20181023, end: 20220814

REACTIONS (3)
  - Drug intolerance [Unknown]
  - Product dose omission issue [Unknown]
  - Incorrect dose administered [Unknown]
